FAERS Safety Report 8807482 (Version 1)
Quarter: 2012Q4

REPORT INFORMATION
  Report Type: 
  Country: US (occurrence: US)
  Receive Date: 20120925
  Receipt Date: 20120925
  Transmission Date: 20130627
  Serious: Yes (Other)
  Sender: FDA-Public Use
  Company Number: US-PFIZER INC-2012234863

PATIENT
  Age: 46 Year
  Sex: Female
  Weight: 54 kg

DRUGS (7)
  1. XALKORI [Suspect]
     Indication: METASTATIC NEOPLASM
     Dosage: 250 mg, 2x/day
     Dates: start: 20120917, end: 20120918
  2. XANAX [Concomitant]
     Indication: ANXIETY
     Dosage: 0.25 mg, 2x/day
  3. FOLIC ACID [Concomitant]
     Dosage: 1 mg, daily
  4. VITAMIN C [Concomitant]
     Dosage: 200 mg, daily
  5. IRON [Concomitant]
     Dosage: 320 mg, 3x/day
  6. TESSALON PERLE [Concomitant]
     Dosage: 100 mg, as needed
  7. ALBUTEROL [Concomitant]
     Dosage: (2 puffs ), as needed

REACTIONS (1)
  - Respiratory failure [Unknown]
